FAERS Safety Report 4963331-2 (Version None)
Quarter: 2006Q2

REPORT INFORMATION
  Report Type: 
  Country: None (occurrence: None)
  Receive Date: 20060404
  Receipt Date: 20060404
  Transmission Date: 20061013
  Serious: Yes (Life-Threatening, Hospitalization)
  Sender: FDA-Public Use
  Company Number: None

PATIENT
  Sex: Male

DRUGS (1)
  1. HEPARIN [Suspect]
     Indication: DEEP VEIN THROMBOSIS
     Dosage: IV DRIP
     Route: 041
     Dates: start: 20050425, end: 20050427

REACTIONS (3)
  - HAEMATOMA [None]
  - HAEMOTHORAX [None]
  - PLEURAL DISORDER [None]
